FAERS Safety Report 13538076 (Version 2)
Quarter: 2017Q3

REPORT INFORMATION
  Report Type: Spontaneous
  Country: US (occurrence: US)
  Receive Date: 20170512
  Receipt Date: 20170809
  Transmission Date: 20171127
  Serious: No
  Sender: FDA-Public Use
  Company Number: US-ASTRAZENECA-2017SE49697

PATIENT
  Age: 28965 Day
  Sex: Female
  Weight: 68.9 kg

DRUGS (3)
  1. ALBUTEROL. [Concomitant]
     Active Substance: ALBUTEROL
     Indication: SUPPLEMENTATION THERAPY
     Dosage: AS REQUIRED
  2. SYMBICORT [Suspect]
     Active Substance: BUDESONIDE\FORMOTEROL FUMARATE DIHYDRATE
     Indication: ASTHMA
     Dosage: 160/4.5 MCG, ONE INHALTION TWO TIMES A DAY
     Route: 055
  3. SYMBICORT [Suspect]
     Active Substance: BUDESONIDE\FORMOTEROL FUMARATE DIHYDRATE
     Indication: ASTHMA
     Dosage: 160/4.5 MCG, TWO INHALTIONS TWO TIMES A DAY
     Route: 055

REACTIONS (12)
  - Hypoacusis [Unknown]
  - Memory impairment [Unknown]
  - Wrong technique in product usage process [Recovered/Resolved]
  - Body height decreased [Unknown]
  - Injury [Unknown]
  - Weight decreased [Unknown]
  - Balance disorder [Unknown]
  - Intentional product misuse [Unknown]
  - Visual acuity reduced [Unknown]
  - Weight increased [Unknown]
  - Product quality issue [Unknown]
  - Dyspnoea [Unknown]

NARRATIVE: CASE EVENT DATE: 20170426
